FAERS Safety Report 16465709 (Version 2)
Quarter: 2023Q4

REPORT INFORMATION
  Report Type: Spontaneous
  Country: US (occurrence: US)
  Receive Date: 20190621
  Receipt Date: 20231113
  Transmission Date: 20240110
  Serious: No
  Sender: FDA-Public Use
  Company Number: US-BEH-2019102485

PATIENT
  Age: 62 Year
  Sex: Male

DRUGS (1)
  1. HIZENTRA [Suspect]
     Active Substance: HUMAN IMMUNOGLOBULIN G
     Indication: Chronic inflammatory demyelinating polyradiculoneuropathy
     Dosage: UNK
     Route: 065

REACTIONS (4)
  - Infusion site nodule [Recovered/Resolved]
  - Headache [Recovered/Resolved]
  - No adverse event [Unknown]
  - Lack of administration site rotation [Unknown]

NARRATIVE: CASE EVENT DATE: 20190512
